FAERS Safety Report 4353914-5 (Version None)
Quarter: 2004Q2

REPORT INFORMATION
  Report Type: 
  Country: None (occurrence: None)
  Receive Date: 20040503
  Receipt Date: 20040421
  Transmission Date: 20050107
  Serious: Yes (Other)
  Sender: FDA-Public Use
  Company Number: 2004-04-1174

PATIENT
  Age: 66 Year
  Sex: Female

DRUGS (2)
  1. CLARITIN [Suspect]
     Indication: RHINITIS ALLERGIC
     Dosage: 10 MG ORAL
     Route: 048
     Dates: start: 20040319
  2. LIVOSTIN [Concomitant]

REACTIONS (3)
  - DIZZINESS [None]
  - MALAISE [None]
  - TINNITUS [None]
